FAERS Safety Report 8340515 (Version 7)
Quarter: 2015Q3

REPORT INFORMATION
  Report Type: Report from Study
  Country: CZ (occurrence: CZ)
  Receive Date: 20120117
  Receipt Date: 20150714
  Transmission Date: 20151125
  Serious: Yes (Hospitalization)
  Sender: FDA-Public Use
  Company Number: CZ-ROCHE-1029612

PATIENT
  Age: 46 Year
  Sex: Female
  Weight: 67 kg

DRUGS (5)
  1. NIZORAL [Concomitant]
     Active Substance: KETOCONAZOLE
     Route: 065
     Dates: start: 20120113, end: 20120124
  2. ERYFLUID [Concomitant]
     Active Substance: ERYTHROMYCIN
     Route: 065
     Dates: start: 20111219, end: 20120110
  3. VEMURAFENIB [Suspect]
     Active Substance: VEMURAFENIB
     Route: 048
     Dates: start: 20120201
  4. VEMURAFENIB [Suspect]
     Active Substance: VEMURAFENIB
     Route: 048
     Dates: start: 20120203
  5. VEMURAFENIB [Suspect]
     Active Substance: VEMURAFENIB
     Indication: MALIGNANT MELANOMA
     Route: 048
     Dates: start: 20111207, end: 20120110

REACTIONS (1)
  - Dermatitis exfoliative [Recovered/Resolved]

NARRATIVE: CASE EVENT DATE: 20120110
